FAERS Safety Report 4661134-X (Version None)
Quarter: 2005Q2

REPORT INFORMATION
  Report Type: 
  Country: None (occurrence: None)
  Receive Date: 20050428
  Receipt Date: 20050216
  Transmission Date: 20051028
  Serious: Yes (Other)
  Sender: FDA-Public Use
  Company Number: 395680

PATIENT
  Age: 58 Year
  Sex: Female
  Weight: 89.4 kg

DRUGS (1)
  1. NAPROSYN [Suspect]
     Indication: RHEUMATOID ARTHRITIS
     Dosage: ORAL
     Route: 048
     Dates: start: 19750615

REACTIONS (5)
  - GASTRIC ULCER [None]
  - GASTRITIS [None]
  - GASTROINTESTINAL INJURY [None]
  - OESOPHAGITIS [None]
  - PANCREATITIS [None]
